FAERS Safety Report 6813260-4 (Version None)
Quarter: 2010Q3

REPORT INFORMATION
  Report Type: 
  Country: None (occurrence: None)
  Receive Date: 20100701
  Receipt Date: 20100622
  Transmission Date: 20110219
  Serious: Yes (Other)
  Sender: FDA-Public Use
  Company Number: US-PFIZER INC-2010078912

PATIENT
  Sex: Female

DRUGS (7)
  1. CADUET [Suspect]
     Indication: HYPERTENSION
     Dosage: 10/20 MG DAILY
     Route: 048
  2. CADUET [Suspect]
     Indication: BLOOD CHOLESTEROL INCREASED
  3. NORVASC [Suspect]
     Indication: HYPERTENSION
     Dosage: UNK
  4. SULINDAC [Concomitant]
     Indication: OSTEOARTHRITIS
     Dosage: 200 MG, DAILY
  5. METHENAMINE/SODIUM BIPHOSP/PHENYL SALIC/METHYLENE BLUE/HYOSCYAM SULF [Concomitant]
     Indication: BLADDER DISORDER
     Dosage: UNK
  6. METOPROLOL [Concomitant]
     Indication: HYPERTENSION
     Dosage: 100 MG, 2X/DAY
  7. LISINOPRIL [Concomitant]
     Indication: HYPERTENSION
     Dosage: 20 MG, DAILY

REACTIONS (2)
  - BLOOD CHOLESTEROL INCREASED [None]
  - CYSTOCELE [None]
